FAERS Safety Report 7918848-5 (Version None)
Quarter: 2011Q4

REPORT INFORMATION
  Report Type: 
  Country: None (occurrence: None)
  Receive Date: 20111116
  Receipt Date: 20111108
  Transmission Date: 20120403
  Serious: Yes (Hospitalization)
  Sender: FDA-Public Use
  Company Number: PHHY2011GB098269

PATIENT
  Age: 32 Year
  Sex: Female

DRUGS (7)
  1. SERTRALINE HYDROCHLORIDE [Suspect]
     Dosage: 400 MG, UNK
  2. VITAMIN D [Concomitant]
  3. SERTRALINE HYDROCHLORIDE [Suspect]
     Dosage: 200 MG, QD
     Dates: start: 20110701
  4. IBUPROFEN [Concomitant]
  5. LEVOTHYROXINE SODIUM [Concomitant]
     Dosage: 200 UG, QD
  6. SERTRALINE HYDROCHLORIDE [Suspect]
     Dosage: UNK
     Dates: start: 20091201
  7. CALCIUM [Concomitant]

REACTIONS (3)
  - HAEMORRHAGE [None]
  - HEADACHE [None]
  - SUBDURAL HAEMATOMA [None]
